FAERS Safety Report 4611468-X (Version None)
Quarter: 2005Q2

REPORT INFORMATION
  Report Type: 
  Country: None (occurrence: None)
  Receive Date: 20050311
  Receipt Date: 20041112
  Transmission Date: 20051028
  Serious: No
  Sender: FDA-Public Use
  Company Number: 2004-BP-11822BP

PATIENT
  Age: 64 Year
  Sex: Female

DRUGS (8)
  1. SPIRIVA [Suspect]
     Indication: CHRONIC OBSTRUCTIVE PULMONARY DISEASE
     Dosage: 18 MCG (18 MCG, 1 IN 1 D), IH
     Route: 055
     Dates: start: 20041103, end: 20041108
  2. ALBUTEROL [Concomitant]
  3. FLOVENT [Concomitant]
  4. SEREVENT [Concomitant]
  5. LISINOPRIL [Concomitant]
  6. AMARYL [Concomitant]
  7. VALIUM [Concomitant]
  8. TYLENOL (PARACETAMOL) [Concomitant]

REACTIONS (6)
  - DIZZINESS [None]
  - DYSGEUSIA [None]
  - HEADACHE [None]
  - NAUSEA [None]
  - ORAL DISCOMFORT [None]
  - STOMATITIS [None]
